FAERS Safety Report 6837389-X (Version None)
Quarter: 2010Q3

REPORT INFORMATION
  Report Type: 
  Country: None (occurrence: None)
  Receive Date: 20100713
  Receipt Date: 20070510
  Transmission Date: 20110219
  Serious: No
  Sender: FDA-Public Use
  Company Number: US-PFIZER INC-2007039307

PATIENT
  Sex: Female
  Weight: 62.1 kg

DRUGS (8)
  1. CHANTIX [Suspect]
     Indication: SMOKING CESSATION THERAPY
     Dates: start: 20070401
  2. NORVASC [Concomitant]
  3. TOPROL-XL [Concomitant]
  4. SYNTHROID [Concomitant]
  5. ALLOPURINOL [Concomitant]
  6. WELCHOL [Concomitant]
  7. VITAMINS [Concomitant]
  8. FISH OIL [Concomitant]

REACTIONS (4)
  - ACCIDENTAL EXPOSURE [None]
  - DYSGEUSIA [None]
  - SLUGGISHNESS [None]
  - SOMNOLENCE [None]
